FAERS Safety Report 4979599-2 (Version None)
Quarter: 2006Q2

REPORT INFORMATION
  Report Type: 
  Country: None (occurrence: None)
  Receive Date: 20060421
  Receipt Date: 20060412
  Transmission Date: 20061013
  Serious: Yes (Hospitalization)
  Sender: FDA-Public Use
  Company Number: US-BRISTOL-MYERS SQUIBB COMPANY-13344080

PATIENT
  Age: 79 Year
  Sex: Male

DRUGS (2)
  1. COUMADIN [Suspect]
     Dosage: DURATION: ^QUITE SOME TIME^
  2. ZOCOR [Concomitant]

REACTIONS (3)
  - ATRIAL FIBRILLATION [None]
  - CYST [None]
  - DEATH [None]
